FAERS Safety Report 24024448 (Version 3)
Quarter: 2024Q2

REPORT INFORMATION
  Report Type: Report from Study
  Country: IN (occurrence: IN)
  Receive Date: 20240628
  Receipt Date: 20240628
  Transmission Date: 20240716
  Serious: No
  Sender: FDA-Public Use
  Company Number: IN-ROCHE-3415235

PATIENT
  Age: 62 Year
  Sex: Female

DRUGS (1)
  1. PHESGO [Suspect]
     Active Substance: HYALURONIDASE-ZZXF\PERTUZUMAB\TRASTUZUMAB
     Indication: Breast cancer metastatic
     Dosage: INTERVAL 23 DAYS AND INTERVAL 26 DAYS FREQUENCY 1
     Route: 058
     Dates: start: 20220503

REACTIONS (2)
  - Off label use [Unknown]
  - No adverse event [Unknown]
